FAERS Safety Report 8074288-2 (Version None)
Quarter: 2012Q1

REPORT INFORMATION
  Report Type: 
  Country: None (occurrence: None)
  Receive Date: 20120126
  Receipt Date: 20120119
  Transmission Date: 20120608
  Serious: Yes (Other)
  Sender: FDA-Public Use
  Company Number: US-US-EMD SERONO, INC.-7108318

PATIENT
  Sex: Male

DRUGS (2)
  1. REBIF [Suspect]
     Indication: MULTIPLE SCLEROSIS
     Route: 058
     Dates: start: 20090713, end: 20111201
  2. STEROIDS [Suspect]

REACTIONS (3)
  - DIVERTICULITIS [None]
  - MULTIPLE SCLEROSIS RELAPSE [None]
  - INCISIONAL HERNIA [None]
